FAERS Safety Report 4499908-0 (Version None)
Quarter: 2004Q4

REPORT INFORMATION
  Report Type: 
  Country: None (occurrence: None)
  Receive Date: 20041108
  Receipt Date: 20041020
  Transmission Date: 20050328
  Serious: No
  Sender: FDA-Public Use
  Company Number: 9133

PATIENT
  Age: 20 Year
  Sex: Female

DRUGS (7)
  1. METHOTREXATE [Suspect]
     Indication: RHEUMATOID ARTHRITIS
     Dosage: 20 MG WEEKLY/40 MG WEEKLY/20 MG WEEKLY
  2. METHOTREXATE [Suspect]
     Indication: RHEUMATOID ARTHRITIS
     Dosage: 8 MG WEEKLY
     Route: 048
  3. INFLIXIMAB [Suspect]
     Indication: RHEUMATOID ARTHRITIS
     Dosage: 3 MG/KG OTH
  4. DEXAMETHASONE [Suspect]
     Indication: RHEUMATOID ARTHRITIS
     Dosage: 9 MG/6 MG/4 MG/3 MG/2 MG/2 MG/5 MG
     Route: 048
  5. MYCOPHENOLATE MOFETIL [Suspect]
     Indication: RHEUMATOID ARTHRITIS
     Dosage: 2 G
     Route: 048
  6. CYCLOSPORINE [Suspect]
     Dosage: 75 MG/150 MG
     Route: 048
  7. . [Concomitant]

REACTIONS (2)
  - ENCEPHALITIS HERPES [None]
  - IMMUNOSUPPRESSION [None]
